FAERS Safety Report 11057540 (Version 1)
Quarter: 2015Q2

REPORT INFORMATION
  Report Type: Spontaneous
  Country: BG (occurrence: BG)
  Receive Date: 20150422
  Receipt Date: 20150422
  Transmission Date: 20150821
  Serious: Yes (Other)
  Sender: FDA-Public Use
  Company Number: PHHY2015BG045900

PATIENT
  Age: 34 Year
  Sex: Female

DRUGS (4)
  1. MEROPENEM. [Concomitant]
     Active Substance: MEROPENEM
     Indication: TUBERCULOSIS
     Route: 065
  2. FUNGOLON [Concomitant]
     Indication: TUBERCULOSIS
     Route: 065
  3. VANCOMYCIN [Suspect]
     Active Substance: VANCOMYCIN
     Indication: TUBERCULOSIS
     Dosage: UNK
     Route: 065
     Dates: end: 20121220
  4. MAXIPIM [Concomitant]
     Indication: TUBERCULOSIS
     Route: 065

REACTIONS (1)
  - Alanine aminotransferase increased [Unknown]
